FAERS Safety Report 7291716-0 (Version None)
Quarter: 2011Q1

REPORT INFORMATION
  Report Type: 
  Country: None (occurrence: None)
  Receive Date: 20110214
  Receipt Date: 20101216
  Transmission Date: 20110831
  Serious: Yes (Life-Threatening, Hospitalization, Other)
  Sender: FDA-Public Use
  Company Number: FR-PFIZER INC-HQWYE101611JUL05

PATIENT
  Age: 27 Month
  Sex: Female
  Weight: 11 kg

DRUGS (3)
  1. ZITHROMAX [Suspect]
     Indication: BRONCHITIS
     Dosage: 220.0 MG, 1X/DAY
     Route: 065
     Dates: start: 20050519, end: 20050521
  2. IBUPROFEN (ADVIL) [Suspect]
     Indication: BRONCHITIS
     Dosage: 82.5 MG, 4X/DAY
     Route: 048
     Dates: start: 20050519, end: 20050521
  3. ACETAMINOPHEN [Concomitant]
     Dosage: UNK
     Route: 048
     Dates: end: 20050522

REACTIONS (5)
  - STEVENS-JOHNSON SYNDROME [None]
  - ERYTHEMA [None]
  - DERMATITIS BULLOUS [None]
  - STAPHYLOCOCCAL BACTERAEMIA [None]
  - CONJUNCTIVITIS [None]
